FAERS Safety Report 18893722 (Version 1)
Quarter: 2021Q1

REPORT INFORMATION
  Report Type: Spontaneous
  Country: US (occurrence: US)
  Receive Date: 20210215
  Receipt Date: 20210215
  Transmission Date: 20210420
  Serious: Yes (Disabling, Other)
  Sender: FDA-Public Use
  Company Number: US-PURDUE-USA-2020-0202885

PATIENT
  Sex: Female

DRUGS (1)
  1. OXYCODONE HYDROCHLORIDE (SIMILAR TO NDA 22?272) [Suspect]
     Active Substance: OXYCODONE HYDROCHLORIDE
     Indication: NECK INJURY
     Dosage: UNK
     Route: 048

REACTIONS (7)
  - Anxiety [Unknown]
  - Emotional distress [Unknown]
  - Drug dependence [Unknown]
  - Pain [Unknown]
  - Substance dependence [Unknown]
  - Cognitive disorder [Unknown]
  - Physical disability [Unknown]
